FAERS Safety Report 7552081-4 (Version None)
Quarter: 2011Q2

REPORT INFORMATION
  Report Type: 
  Country: None (occurrence: None)
  Receive Date: 20110616
  Receipt Date: 20110607
  Transmission Date: 20111010
  Serious: Yes (Other)
  Sender: FDA-Public Use
  Company Number: UA-JNJFOC-20110604173

PATIENT
  Age: 60 Year
  Sex: Female

DRUGS (1)
  1. TOPAMAX [Suspect]
     Indication: PANIC ATTACK
     Route: 048

REACTIONS (1)
  - HALLUCINATION, VISUAL [None]
